FAERS Safety Report 7294867-X (Version None)
Quarter: 2011Q1

REPORT INFORMATION
  Report Type: 
  Country: None (occurrence: None)
  Receive Date: 20110203
  Receipt Date: 20110118
  Transmission Date: 20110831
  Serious: Yes (Death)
  Sender: FDA-Public Use
  Company Number: B0694920A

PATIENT
  Age: 46 Year
  Sex: Male

DRUGS (2)
  1. TRAZODONE (TRAZODONE) (FORMULATION UNKNOWN) (GENERIC) [Suspect]
     Dosage: ORAL
     Route: 048
  2. PAROXETINE HYDROCHLORIDE [Suspect]
     Dosage: ORAL
     Route: 048

REACTIONS (1)
  - ADVERSE DRUG REACTION [None]
